FAERS Safety Report 25033059 (Version 1)
Quarter: 2025Q1

REPORT INFORMATION
  Report Type: Spontaneous
  Country: ES (occurrence: ES)
  Receive Date: 20250303
  Receipt Date: 20250303
  Transmission Date: 20250408
  Serious: Yes (Hospitalization)
  Sender: MYLAN
  Company Number: None

PATIENT
  Age: 87 Year
  Sex: Male

DRUGS (4)
  1. ATORVASTATIN [Suspect]
     Active Substance: ATORVASTATIN
     Indication: Dyslipidaemia
     Dosage: 80 MILLIGRAM, QD (80MG EVERY 24 HOURS)
     Dates: start: 20230428, end: 20240207
  2. ATORVASTATIN [Suspect]
     Active Substance: ATORVASTATIN
     Dosage: 80 MILLIGRAM, QD (80MG EVERY 24 HOURS)
     Route: 048
     Dates: start: 20230428, end: 20240207
  3. ATORVASTATIN [Suspect]
     Active Substance: ATORVASTATIN
     Dosage: 80 MILLIGRAM, QD (80MG EVERY 24 HOURS)
     Route: 048
     Dates: start: 20230428, end: 20240207
  4. ATORVASTATIN [Suspect]
     Active Substance: ATORVASTATIN
     Dosage: 80 MILLIGRAM, QD (80MG EVERY 24 HOURS)
     Dates: start: 20230428, end: 20240207

REACTIONS (2)
  - Hepatic cytolysis [Unknown]
  - Rhabdomyolysis [Unknown]

NARRATIVE: CASE EVENT DATE: 20240123
